FAERS Safety Report 20108687 (Version 2)
Quarter: 2023Q2

REPORT INFORMATION
  Report Type: Spontaneous
  Country: GB (occurrence: GB)
  Receive Date: 20211124
  Receipt Date: 20230614
  Transmission Date: 20230721
  Serious: Yes (Other)
  Sender: FDA-Public Use
  Company Number: None

PATIENT

DRUGS (4)
  1. ALBUTEROL SULFATE [Suspect]
     Active Substance: ALBUTEROL SULFATE
     Indication: Asthma
     Dosage: UNK (100)
     Route: 055
     Dates: start: 20210321, end: 20210915
  2. BECLOMETHASONE DIPROPIONATE\FORMOTEROL FUMARATE [Concomitant]
     Active Substance: BECLOMETHASONE DIPROPIONATE\FORMOTEROL FUMARATE
     Indication: Ill-defined disorder
     Dosage: UNK
     Route: 065
  3. LEVOTHYROXINE SODIUM [Concomitant]
     Active Substance: LEVOTHYROXINE SODIUM
     Indication: Ill-defined disorder
     Dosage: UNK
     Route: 065
  4. SERETIDE [Concomitant]
     Active Substance: FLUTICASONE PROPIONATE\SALMETEROL XINAFOATE
     Indication: Ill-defined disorder
     Dosage: UNK
     Route: 065

REACTIONS (1)
  - Somnolence [Recovered/Resolved]

NARRATIVE: CASE EVENT DATE: 20210329
